FAERS Safety Report 15029583 (Version 2)
Quarter: 2018Q3

REPORT INFORMATION
  Report Type: Report from Study
  Country: CA (occurrence: CA)
  Receive Date: 20180619
  Receipt Date: 20180713
  Transmission Date: 20181010
  Serious: Yes (Other)
  Sender: FDA-Public Use
  Company Number: CA-JNJFOC-20180531261

PATIENT
  Age: 77 Year
  Sex: Male

DRUGS (1)
  1. DARZALEX [Suspect]
     Active Substance: DARATUMUMAB
     Indication: PLASMA CELL MYELOMA
     Dosage: STRENGTH = 400 MG
     Route: 042
     Dates: start: 20171016

REACTIONS (7)
  - Muscle spasms [Unknown]
  - Neuropathy peripheral [Unknown]
  - Asthenia [Unknown]
  - Fall [Unknown]
  - Pain [Unknown]
  - Intervertebral disc degeneration [Unknown]
  - Loss of personal independence in daily activities [Unknown]

NARRATIVE: CASE EVENT DATE: 20180508
